FAERS Safety Report 25223353 (Version 1)
Quarter: 2025Q2

REPORT INFORMATION
  Report Type: Spontaneous
  Country: US (occurrence: US)
  Receive Date: 20250422
  Receipt Date: 20250422
  Transmission Date: 20250716
  Serious: No
  Sender: Norvium Bioscience
  Company Number: US-Norvium Bioscience LLC-079964

PATIENT
  Sex: Female

DRUGS (1)
  1. VENLAFAXINE HYDROCHLORIDE [Suspect]
     Active Substance: VENLAFAXINE HYDROCHLORIDE
     Indication: Product used for unknown indication

REACTIONS (4)
  - Anxiety [Unknown]
  - Rash [Unknown]
  - Dyspnoea [Unknown]
  - Product substitution issue [Unknown]
